FAERS Safety Report 4841174-8 (Version None)
Quarter: 2005Q4

REPORT INFORMATION
  Report Type: 
  Country: None (occurrence: None)
  Receive Date: 20051130
  Receipt Date: 20051021
  Transmission Date: 20060501
  Serious: Yes (Hospitalization, Other)
  Sender: FDA-Public Use
  Company Number: US-BRISTOL-MYERS SQUIBB COMPANY-13154323

PATIENT
  Age: 25 Year
  Sex: Female
  Weight: 63 kg

DRUGS (6)
  1. ABILIFY [Suspect]
     Route: 048
     Dates: start: 20051017, end: 20051017
  2. BUSPAR [Suspect]
     Route: 048
     Dates: start: 20051017, end: 20051017
  3. LAMICTAL [Suspect]
     Dates: start: 20051017, end: 20051017
  4. ZOLOFT [Suspect]
     Route: 048
     Dates: start: 20051017, end: 20051017
  5. AMBIEN [Concomitant]
  6. KLONOPIN [Concomitant]

REACTIONS (2)
  - MULTIPLE DRUG OVERDOSE [None]
  - RESPIRATORY DISTRESS [None]
